FAERS Safety Report 12378085 (Version 1)
Quarter: 2016Q2

REPORT INFORMATION
  Report Type: Report from Study
  Country: US (occurrence: US)
  Receive Date: 20160517
  Receipt Date: 20160517
  Transmission Date: 20160815
  Serious: No
  Sender: FDA-Public Use
  Company Number: US-MALLINCKRODT-T201600802

PATIENT
  Age: 73 Year
  Sex: Female

DRUGS (3)
  1. NIFEDIPINE. [Suspect]
     Active Substance: NIFEDIPINE
     Indication: PRODUCT USED FOR UNKNOWN INDICATION
     Dosage: UNK
     Route: 065
     Dates: end: 20160227
  2. REPOSITORY CORTICOTROPIN INJECTION [Suspect]
     Active Substance: CORTICOTROPIN
     Dosage: 40 UNITS TWICE WKLY
     Route: 030
     Dates: start: 201603
  3. REPOSITORY CORTICOTROPIN INJECTION [Suspect]
     Active Substance: CORTICOTROPIN
     Indication: DERMATOMYOSITIS
     Dosage: 80 UNITS TWICE WKLY
     Route: 030
     Dates: start: 20160223, end: 201603

REACTIONS (6)
  - Dizziness [Not Recovered/Not Resolved]
  - Drug dose omission [Unknown]
  - Diverticulitis [Recovering/Resolving]
  - Blood pressure increased [Not Recovered/Not Resolved]
  - Injury associated with device [Not Recovered/Not Resolved]
  - Heart rate increased [Not Recovered/Not Resolved]

NARRATIVE: CASE EVENT DATE: 201602
